FAERS Safety Report 6284198-9 (Version None)
Quarter: 2009Q3

REPORT INFORMATION
  Report Type: 
  Country: None (occurrence: None)
  Receive Date: 20090722
  Receipt Date: 20090717
  Transmission Date: 20100115
  Serious: Yes (Hospitalization)
  Sender: FDA-Public Use
  Company Number: GXKR2009DE07998

PATIENT
  Age: 84 Year
  Sex: Female
  Weight: 63 kg

DRUGS (24)
  1. PREDNISOLONE [Suspect]
     Indication: CHRONIC OBSTRUCTIVE PULMONARY DISEASE
     Dosage: 5 MG, QD, ORAL; 5 MG, QD
     Route: 048
     Dates: start: 20090326, end: 20090406
  2. PREDNISOLONE [Suspect]
     Indication: CHRONIC OBSTRUCTIVE PULMONARY DISEASE
     Dosage: 5 MG, QD, ORAL; 5 MG, QD
     Route: 048
     Dates: start: 20090326, end: 20090604
  3. ACETYLSALICYLIC ACID (NGX) (ACETYLSALICYLIC ACID) TABLET, 100MG [Suspect]
     Indication: CORONARY ARTERY DISEASE
     Dosage: 100 MG, ORAL
     Route: 048
     Dates: start: 19930101
  4. RULID (ROXITHROMYCIN) 300MG [Suspect]
     Indication: PNEUMONIA
     Dosage: 300 MG, QD, ORAL
     Route: 048
     Dates: start: 20090326, end: 20090406
  5. ZIENAM (CILASTATIN SODIUM, IMIPENEM) [Suspect]
     Indication: URINARY TRACT INFECTION
     Dosage: 500 MG, TID, INTRAVENOUS
     Route: 042
     Dates: start: 20090414, end: 20090416
  6. PANTOZOL (PANTOPRAZOLE SODIUM) 40MG [Suspect]
     Indication: PROPHYLAXIS AGAINST GASTROINTESTINAL ULCER
     Dosage: 40 MG, QD, ORAL; 20 MG, QD
     Route: 048
     Dates: start: 20041001
  7. PANTOZOL (PANTOPRAZOLE SODIUM) 40MG [Suspect]
     Indication: PROPHYLAXIS AGAINST GASTROINTESTINAL ULCER
     Dosage: 40 MG, QD, ORAL; 20 MG, QD
     Route: 048
     Dates: start: 20090101
  8. SYMBICORT [Suspect]
     Indication: CHRONIC OBSTRUCTIVE PULMONARY DISEASE
     Dosage: 1 DF, BID, RESPIRATORY; 1 DF, BID
     Route: 055
     Dates: start: 20080701
  9. SYMBICORT [Suspect]
     Indication: CHRONIC OBSTRUCTIVE PULMONARY DISEASE
     Dosage: 1 DF, BID, RESPIRATORY; 1 DF, BID
     Route: 055
     Dates: start: 20090101
  10. ROCEPHIN [Suspect]
     Indication: PNEUMONIA
     Dosage: 2 G, QD, INTRAVENOUS
     Route: 042
     Dates: start: 20090326, end: 20090406
  11. ACTRAPID HUMAN (INSULIN HUMAN) [Concomitant]
  12. CALCIUM (CALCIUM) [Concomitant]
  13. LERCANIDIPINE [Concomitant]
  14. CARVEDILOL [Concomitant]
  15. LANTUS [Concomitant]
  16. METRONIDAZOLE (METRONIDAZOLE) [Concomitant]
  17. MOXONIDINE (MOXONIDINE) [Concomitant]
  18. RAMIPRIL [Concomitant]
  19. SIMETHICONE (SIMETICONE) [Concomitant]
  20. SIMVASTATIN [Concomitant]
  21. SPIRIVA [Concomitant]
  22. SPIRONOLACTONE [Concomitant]
  23. TORSEMIDE [Concomitant]
  24. XIPAMIDE (XIPAMIDE) [Concomitant]

REACTIONS (1)
  - CLOSTRIDIUM DIFFICILE COLITIS [None]
